FAERS Safety Report 17686859 (Version 5)
Quarter: 2020Q3

REPORT INFORMATION
  Report Type: Spontaneous
  Country: JP (occurrence: JP)
  Receive Date: 20200421
  Receipt Date: 20200728
  Transmission Date: 20201102
  Serious: Yes (Hospitalization)
  Sender: FDA-Public Use
  Company Number: JP-CELGENEUS-JPN-20190904633

PATIENT
  Age: 82 Year
  Sex: Male
  Weight: 47 kg

DRUGS (44)
  1. TAKECAB [Concomitant]
     Active Substance: VONOPRAZAN FUMARATE
     Indication: CHRONIC GASTRITIS
     Dosage: 20 MILLIGRAM
     Route: 048
     Dates: start: 20181117, end: 20191213
  2. CALONAL [Concomitant]
     Active Substance: ACETAMINOPHEN
     Route: 048
     Dates: start: 20200220, end: 20200221
  3. LEVOFLOXACIN HEMIHYDRATE [Concomitant]
     Active Substance: LEVOFLOXACIN
     Dosage: 500 MILLIGRAM
     Route: 065
     Dates: start: 20190912, end: 20190929
  4. DIAMOX SEQUELS [Concomitant]
     Active Substance: ACETAZOLAMIDE
     Indication: PROPHYLAXIS
     Dosage: 250 MILLIGRAM
     Route: 065
     Dates: start: 20181125, end: 20181201
  5. FEBURIC [Concomitant]
     Active Substance: FEBUXOSTAT
     Indication: PROPHYLAXIS
     Dosage: 20 MILLIGRAM
     Route: 065
     Dates: start: 20181126, end: 20181130
  6. VENETOCLAX. [Concomitant]
     Active Substance: VENETOCLAX
     Dosage: 400 MILLIGRAM
     Route: 048
     Dates: start: 20190107, end: 20190121
  7. CALONAL [Concomitant]
     Active Substance: ACETAMINOPHEN
     Indication: INFLUENZA
     Route: 048
     Dates: start: 20200219, end: 20200219
  8. XYLOCAINE [Concomitant]
     Active Substance: LIDOCAINE HYDROCHLORIDE
     Indication: PROPHYLAXIS
     Dosage: 240 MILLIGRAM
     Route: 065
     Dates: start: 20181211, end: 20181223
  9. LEVOFLOXACIN HEMIHYDRATE [Concomitant]
     Active Substance: LEVOFLOXACIN
     Indication: FEBRILE NEUTROPENIA
     Dosage: 500 MILLIGRAM
     Route: 065
     Dates: start: 20190826, end: 20190830
  10. LEVOFLOXACIN HEMIHYDRATE [Concomitant]
     Active Substance: LEVOFLOXACIN
     Dosage: 500 MILLIGRAM
     Route: 065
     Dates: start: 20191016, end: 20191029
  11. LEVOFLOXACIN HEMIHYDRATE [Concomitant]
     Active Substance: LEVOFLOXACIN
     Dosage: 500 MILLIGRAM
     Route: 065
     Dates: start: 20191209, end: 20191212
  12. VENETOCLAX. [Concomitant]
     Active Substance: VENETOCLAX
     Dosage: 200 MILLIGRAM
     Route: 048
     Dates: start: 20181127, end: 20181127
  13. MAGNESIUM OXIDE. [Concomitant]
     Active Substance: MAGNESIUM OXIDE
     Dosage: 660 MILLIGRAM
     Route: 048
     Dates: start: 20200330
  14. HIRUDOID [Concomitant]
     Active Substance: GLYCOSAMINOGLYCANS
     Route: 062
     Dates: start: 20180908
  15. LOCOID [Concomitant]
     Active Substance: HYDROCORTISONE BUTYRATE
     Indication: DRY SKIN
     Dosage: QS
     Route: 061
     Dates: start: 20190104
  16. SODIUM PICOSULFATE HYDRATE [Concomitant]
     Active Substance: SODIUM PICOSULFATE
     Indication: CONSTIPATION
     Route: 048
     Dates: start: 20190701
  17. LEVOFLOXACIN HEMIHYDRATE [Concomitant]
     Active Substance: LEVOFLOXACIN
     Route: 065
     Dates: start: 20191219
  18. RINDERON VG [Concomitant]
     Active Substance: BETAMETHASONE VALERATE\GENTAMICIN SULFATE
     Indication: DRY SKIN
     Route: 062
     Dates: start: 20190930
  19. FUNGUARD [Concomitant]
     Active Substance: MICAFUNGIN SODIUM
     Indication: ANTIFUNGAL PROPHYLAXIS
     Dosage: 100 MILLIGRAM
     Route: 065
     Dates: start: 20181126, end: 20191221
  20. PASTARON SOFT [Concomitant]
     Indication: DRY SKIN
     Route: 061
     Dates: start: 20200325
  21. VIDAZA [Suspect]
     Active Substance: AZACITIDINE
     Dosage: DAYS 1?7 OF EACH 28?DAY CYCLE
     Route: 058
     Dates: start: 20190930, end: 20200112
  22. VENETOCLAX. [Concomitant]
     Active Substance: VENETOCLAX
     Dosage: 200 MILLIGRAM
     Route: 048
     Dates: start: 20190212, end: 20200120
  23. FLUCONAZOLE. [Concomitant]
     Active Substance: FLUCONAZOLE
     Dosage: 100 MILLIGRAM
     Route: 048
     Dates: start: 20190111
  24. VENETOCLAX. [Concomitant]
     Active Substance: VENETOCLAX
     Indication: ACUTE MYELOID LEUKAEMIA
     Dosage: 100 MILLIGRAM
     Route: 048
     Dates: start: 20181126, end: 20181126
  25. VENETOCLAX. [Concomitant]
     Active Substance: VENETOCLAX
     Dosage: 100 MILLIGRAM
     Route: 048
     Dates: start: 20200121, end: 20200121
  26. HIRUDOID [Concomitant]
     Active Substance: GLYCOSAMINOGLYCANS
     Indication: DRY SKIN
     Route: 061
     Dates: start: 20181114
  27. CALONAL [Concomitant]
     Active Substance: ACETAMINOPHEN
     Indication: BACK PAIN
     Route: 048
     Dates: start: 20190104
  28. FLUCONAZOLE. [Concomitant]
     Active Substance: FLUCONAZOLE
     Indication: PROPHYLAXIS
     Dosage: 100 MILLIGRAM
     Route: 048
     Dates: start: 20181222, end: 20190104
  29. XYLOCAINE [Concomitant]
     Active Substance: LIDOCAINE HYDROCHLORIDE
     Route: 065
     Dates: start: 20190125
  30. LEVOFLOXACIN HEMIHYDRATE [Concomitant]
     Active Substance: LEVOFLOXACIN
     Indication: BACTERIAL INFECTION
     Dosage: 500 MILLIGRAM
     Route: 065
     Dates: start: 20190722, end: 20190804
  31. LEVOFLOXACIN HEMIHYDRATE [Concomitant]
     Active Substance: LEVOFLOXACIN
     Route: 065
     Dates: start: 20200515
  32. VIDAZA [Suspect]
     Active Substance: AZACITIDINE
     Indication: ACUTE MYELOID LEUKAEMIA
     Dosage: DAYS 1?7 OF EACH 28?DAY CYCLE
     Route: 058
     Dates: start: 20181126, end: 20190815
  33. VENETOCLAX. [Concomitant]
     Active Substance: VENETOCLAX
     Dosage: 200 MILLIGRAM
     Route: 048
     Dates: start: 20200122, end: 20200512
  34. MIYA?BM [Concomitant]
     Active Substance: CLOSTRIDIUM BUTYRICUM SPORES STRAIN M-55
     Indication: PROPHYLAXIS
     Dosage: 9 DOSAGE FORMS
     Route: 048
     Dates: start: 20181113
  35. MAGNESIUM OXIDE. [Concomitant]
     Active Substance: MAGNESIUM OXIDE
     Indication: CONSTIPATION
     Dosage: 990 MILLIGRAM
     Route: 048
     Dates: start: 20181113
  36. RESTAMIN KOWA [Concomitant]
     Indication: PROPHYLAXIS
     Dosage: QS
     Route: 061
     Dates: start: 20190104
  37. HACHIAZULE [Concomitant]
     Indication: PROPHYLAXIS
     Route: 065
     Dates: start: 20190125
  38. MOHRUS PAP [Concomitant]
     Indication: SCIATICA
     Route: 062
     Dates: start: 20190515
  39. VIDAZA [Suspect]
     Active Substance: AZACITIDINE
     Dosage: DAYS 1?7 OF EACH 28?DAY CYCLE
     Route: 058
     Dates: start: 20200304, end: 20200428
  40. VENETOCLAX. [Concomitant]
     Active Substance: VENETOCLAX
     Dosage: 400 MILLIGRAM
     Route: 048
     Dates: start: 20181128, end: 20181221
  41. VENETOCLAX. [Concomitant]
     Active Substance: VENETOCLAX
     Dosage: 200 MILLIGRAM
     Route: 048
     Dates: start: 20181222, end: 20190106
  42. TAKECAB [Concomitant]
     Active Substance: VONOPRAZAN FUMARATE
     Dosage: 20 MILLIGRAM
     Route: 048
     Dates: start: 20191218
  43. LYRICA [Concomitant]
     Active Substance: PREGABALIN
     Indication: SCIATICA
     Route: 065
     Dates: start: 20190123
  44. YD SOLITA T NO.1 [Concomitant]
     Indication: PROPHYLAXIS
     Dosage: 9 LITERS
     Route: 041
     Dates: start: 20181125, end: 20181201

REACTIONS (8)
  - Abdominal pain upper [Recovering/Resolving]
  - Gastrointestinal infection [Recovered/Resolved]
  - Febrile neutropenia [Recovered/Resolved]
  - Febrile neutropenia [Recovered/Resolved]
  - Decreased appetite [Recovering/Resolving]
  - Dizziness [Unknown]
  - Gastrointestinal infection [Recovering/Resolving]
  - Decreased appetite [Recovering/Resolving]

NARRATIVE: CASE EVENT DATE: 20190831
